FAERS Safety Report 22018402 (Version 1)
Quarter: 2023Q1

REPORT INFORMATION
  Report Type: Other
  Country: LB (occurrence: LB)
  Receive Date: 20230221
  Receipt Date: 20230221
  Transmission Date: 20230417
  Serious: Yes (Hospitalization)
  Sender: FDA-Public Use
  Company Number: LB-ALVOGEN-2023089244

PATIENT
  Age: 80 Year
  Sex: Female

DRUGS (6)
  1. METHOTREXATE [Suspect]
     Active Substance: METHOTREXATE
     Indication: Neurodermatitis
     Dosage: TWO DOSES
  2. ASPIRIN [Concomitant]
     Active Substance: ASPIRIN
     Indication: Product used for unknown indication
     Dosage: LOW-DOSE ASPIRIN
  3. BISOPROLOL [Concomitant]
     Active Substance: BISOPROLOL
     Indication: Product used for unknown indication
  4. AMLODIPINE [Concomitant]
     Active Substance: AMLODIPINE BESYLATE
     Indication: Product used for unknown indication
  5. ROSUVASTATIN [Concomitant]
     Active Substance: ROSUVASTATIN
     Indication: Product used for unknown indication
  6. LEVOTHYROXINE [Concomitant]
     Active Substance: LEVOTHYROXINE
     Indication: Product used for unknown indication

REACTIONS (12)
  - Skin toxicity [Unknown]
  - Dermatitis bullous [Unknown]
  - Skin dystrophy [Unknown]
  - Odynophagia [Unknown]
  - Dysphagia [Unknown]
  - Dysphonia [Unknown]
  - Hypophagia [Unknown]
  - Pallor [Unknown]
  - Lethargy [Unknown]
  - Pancytopenia [Unknown]
  - Staphylococcal infection [Unknown]
  - Off label use [Unknown]
